FAERS Safety Report 20520846 (Version 7)
Quarter: 2023Q1

REPORT INFORMATION
  Report Type: Spontaneous
  Country: US (occurrence: US)
  Receive Date: 20220225
  Receipt Date: 20230111
  Transmission Date: 20230418
  Serious: Yes (Other)
  Sender: FDA-Public Use
  Company Number: US-PFIZER INC-202200274831

PATIENT
  Age: 78 Year
  Sex: Female
  Weight: 58.05 kg

DRUGS (3)
  1. TOVIAZ [Suspect]
     Active Substance: FESOTERODINE FUMARATE
     Indication: Renal disorder
     Dosage: 8 MG, 1X/DAY (NEED MORNING)
  2. TOVIAZ [Suspect]
     Active Substance: FESOTERODINE FUMARATE
     Indication: Hypertonic bladder
  3. TOVIAZ [Suspect]
     Active Substance: FESOTERODINE FUMARATE
     Indication: Cystitis interstitial

REACTIONS (7)
  - Neuropathy peripheral [Unknown]
  - Feeling abnormal [Unknown]
  - Insomnia [Unknown]
  - Memory impairment [Unknown]
  - Arthritis [Unknown]
  - Therapeutic product effect incomplete [Unknown]
  - Intentional product misuse [Unknown]
